FAERS Safety Report 4280595-1 (Version None)
Quarter: 2004Q1

REPORT INFORMATION
  Report Type: 
  Country: None (occurrence: None)
  Receive Date: 20040127
  Receipt Date: 20040116
  Transmission Date: 20041129
  Serious: Yes (Hospitalization)
  Sender: FDA-Public Use
  Company Number: 2004195097US

PATIENT
  Age: 55 Year
  Sex: Female
  Weight: 62.1 kg

DRUGS (1)
  1. ROGAINE [Suspect]
     Indication: ALOPECIA
     Dosage: 1 ML, QD, TOPICAL
     Route: 061
     Dates: start: 20010101, end: 20040101

REACTIONS (3)
  - ELECTROCARDIOGRAM ABNORMAL [None]
  - HEART RATE INCREASED [None]
  - PALPITATIONS [None]
